FAERS Safety Report 10526815 (Version 4)
Quarter: 2015Q1

REPORT INFORMATION
  Report Type: Report from Study
  Country: US (occurrence: US)
  Receive Date: 20141020
  Receipt Date: 20150219
  Transmission Date: 20150720
  Serious: Yes (Hospitalization, Other)
  Sender: FDA-Public Use
  Company Number: US-BRISTOL-MYERS SQUIBB COMPANY-21492863

PATIENT
  Sex: Male

DRUGS (9)
  1. INTERLEUKIN-2 [Concomitant]
     Active Substance: ALDESLEUKIN
     Indication: METASTATIC MALIGNANT MELANOMA
     Dosage: 1DF = 7MU/M2.  14AUG2014, 09SEP2014, 30SEP2014(DAYS2-5)
     Route: 042
     Dates: start: 20140724
  2. LORAZEPAM. [Concomitant]
     Active Substance: LORAZEPAM
     Indication: INSOMNIA
     Dosage: 1 MG, PRN
     Route: 048
  3. DOXEPIN [Concomitant]
     Active Substance: DOXEPIN
     Indication: PRURITUS
     Dosage: 10 MG, PRN
     Route: 048
  4. TEMODAR [Concomitant]
     Active Substance: TEMOZOLOMIDE
     Indication: METASTATIC MALIGNANT MELANOMA
     Dosage: 14AUG2014, 09SEP2014, 30SEP2014(DAYS2-5)
     Route: 048
     Dates: start: 20140724
  5. FLUCONAZOLE. [Concomitant]
     Active Substance: FLUCONAZOLE
     Indication: FUNGAL INFECTION
     Dosage: 1 DF, BID
     Route: 048
  6. CISPLATIN. [Suspect]
     Active Substance: CISPLATIN
     Indication: METASTATIC MALIGNANT MELANOMA
     Dosage: 14AUG2014, 09SEP2014, 30SEP2014(DAYS2-4)
     Route: 042
     Dates: start: 20140724
  7. IPILIMUMAB [Suspect]
     Active Substance: IPILIMUMAB
     Indication: METASTATIC MALIGNANT MELANOMA
     Dosage: 14AUG2014, 09SEP2014, 30SEP2014
     Route: 065
     Dates: start: 20140724
  8. INTERFERON [Concomitant]
     Active Substance: INTERFERON
     Indication: METASTATIC MALIGNANT MELANOMA
     Dosage: 1DF = 5MU/M2.  14AUG2014, 09SEP2014, 30SEP2014(DAYS2-4)
     Route: 058
     Dates: start: 20140724
  9. PRILOSEC [Concomitant]
     Active Substance: OMEPRAZOLE MAGNESIUM
     Indication: DYSPEPSIA
     Dosage: 1 DF, BID
     Route: 048

REACTIONS (3)
  - Chills [Recovered/Resolved]
  - Dermatitis [Recovering/Resolving]
  - Periorbital cellulitis [Recovering/Resolving]

NARRATIVE: CASE EVENT DATE: 20141006
